FAERS Safety Report 4954133-1 (Version None)
Quarter: 2006Q1

REPORT INFORMATION
  Report Type: 
  Country: None (occurrence: None)
  Receive Date: 20060327
  Receipt Date: 20060321
  Transmission Date: 20060701
  Serious: Yes (Death)
  Sender: FDA-Public Use
  Company Number: 2006AP01365

PATIENT
  Age: 65 Year
  Sex: Female

DRUGS (6)
  1. SEROQUEL [Suspect]
     Indication: SCHIZOPHRENIA, PARANOID TYPE
     Route: 048
     Dates: start: 20060210
  2. DIABETES MELLITUS THERAPY [Concomitant]
     Indication: DIABETES MELLITUS
  3. AMARYL [Concomitant]
  4. RISPERIDONE [Concomitant]
     Dates: start: 20060208
  5. RISPERIDONE [Concomitant]
     Dates: start: 20060209
  6. ARIPIPRAZOLE [Concomitant]
     Indication: SCHIZOPHRENIA, PARANOID TYPE
     Dates: start: 20051001

REACTIONS (5)
  - CARDIAC ARREST [None]
  - DYSPEPSIA [None]
  - HALLUCINATION, AUDITORY [None]
  - NAUSEA [None]
  - VOMITING [None]
